FAERS Safety Report 6380518-5 (Version None)
Quarter: 2009Q3

REPORT INFORMATION
  Report Type: 
  Country: None (occurrence: None)
  Receive Date: 20090923
  Receipt Date: 20090910
  Transmission Date: 20100115
  Serious: Yes (Life-Threatening, Hospitalization)
  Sender: FDA-Public Use
  Company Number: 1000008911

PATIENT
  Sex: Female

DRUGS (3)
  1. LEXAPRO [Suspect]
     Indication: DEPRESSION
     Dosage: (10 MG), ORAL
     Route: 048
     Dates: start: 20090701, end: 20090701
  2. INSULIN [Concomitant]
  3. ACETYLSALICYLIC ACID [Concomitant]

REACTIONS (2)
  - COMA [None]
  - GRAND MAL CONVULSION [None]
